FAERS Safety Report 11788494 (Version 1)
Quarter: 2015Q4

REPORT INFORMATION
  Report Type: Spontaneous
  Country: JP (occurrence: None)
  Receive Date: 20151125
  Receipt Date: 20151125
  Transmission Date: 20160305
  Serious: Yes (Other)
  Sender: FDA-Public Use
  Company Number: AS-2015-009171

PATIENT
  Age: 31 Year
  Sex: Male

DRUGS (3)
  1. MELPHALAN [Suspect]
     Active Substance: MELPHALAN
     Indication: ACUTE BIPHENOTYPIC LEUKAEMIA
  2. BUSULFAN [Suspect]
     Active Substance: BUSULFAN
     Indication: ACUTE BIPHENOTYPIC LEUKAEMIA
  3. FLUDARABINE [Suspect]
     Active Substance: FLUDARABINE PHOSPHATE
     Indication: ACUTE BIPHENOTYPIC LEUKAEMIA

REACTIONS (5)
  - Off label use [None]
  - Cystitis haemorrhagic [None]
  - Renal disorder [None]
  - Pneumonia [None]
  - Pleural effusion [None]
